FAERS Safety Report 6588108-6 (Version None)
Quarter: 2010Q1

REPORT INFORMATION
  Report Type: 
  Country: None (occurrence: None)
  Receive Date: 20100218
  Receipt Date: 20100212
  Transmission Date: 20100710
  Serious: Yes (Life-Threatening, Hospitalization, Disabling)
  Sender: FDA-Public Use
  Company Number: IT-SANOFI-AVENTIS-2010SA005553

PATIENT
  Age: 52 Year
  Sex: Male
  Weight: 62 kg

DRUGS (11)
  1. DOCETAXEL [Suspect]
     Route: 042
     Dates: start: 20091111, end: 20091111
  2. DOCETAXEL [Suspect]
     Route: 042
     Dates: start: 20100114, end: 20100114
  3. CISPLATIN [Suspect]
     Route: 042
     Dates: start: 20091111, end: 20091111
  4. CISPLATIN [Suspect]
     Route: 042
     Dates: start: 20100114, end: 20100114
  5. 5-FU [Suspect]
     Route: 041
     Dates: start: 20091111, end: 20091115
  6. 5-FU [Suspect]
     Route: 041
     Dates: start: 20100114, end: 20100118
  7. CETUXIMAB [Suspect]
     Route: 042
     Dates: start: 20091105, end: 20091105
  8. CETUXIMAB [Suspect]
     Route: 042
     Dates: start: 20100120, end: 20100120
  9. NYSTATIN [Concomitant]
     Dates: start: 20091125
  10. FOLIC ACID [Concomitant]
     Route: 048
     Dates: start: 20091205
  11. CHLORTETRACYCLINE [Concomitant]
     Dates: start: 20100115, end: 20100115

REACTIONS (9)
  - CEREBRAL ISCHAEMIA [None]
  - DEVICE RELATED INFECTION [None]
  - DYSARTHRIA [None]
  - ENDOCARDITIS [None]
  - HYPONATRAEMIA [None]
  - MYALGIA [None]
  - MYOCARDIAL ISCHAEMIA [None]
  - NAUSEA [None]
  - RENAL FAILURE [None]
